FAERS Safety Report 6808950-3 (Version None)
Quarter: 2010Q2

REPORT INFORMATION
  Report Type: 
  Country: None (occurrence: None)
  Receive Date: 20100630
  Receipt Date: 20091113
  Transmission Date: 20101027
  Serious: No
  Sender: FDA-Public Use
  Company Number: US-PFIZER INC-2009282906

PATIENT
  Sex: Male
  Weight: 79.365 kg

DRUGS (9)
  1. NITROSTAT [Suspect]
     Indication: CHEST PAIN
     Dosage: 0.4 MG, UNK
     Dates: start: 19890101
  2. NEXIUM [Concomitant]
     Indication: GASTROOESOPHAGEAL REFLUX DISEASE
     Dosage: 40 MG, UNK
  3. NITRO-DUR [Concomitant]
     Indication: CARDIAC DISORDER
     Dosage: FREQUENCY: EVERY HOUR,
  4. ENALAPRIL MALEATE [Concomitant]
     Indication: CARDIAC DISORDER
     Dosage: FREQUENCY: 2X/DAY,
  5. CIPROFLOXACIN [Concomitant]
     Indication: PROSTATIC DISORDER
     Dosage: FREQUENCY: 2X/DAY,
  6. TAMSULOSIN [Concomitant]
     Indication: PROSTATIC DISORDER
     Dosage: 0.4 MG, 1X/DAY
  7. NASONEX [Concomitant]
     Dosage: UNK
  8. ACETYLSALICYLIC ACID [Concomitant]
     Indication: CARDIAC DISORDER
     Dosage: 81 MG, UNK
  9. ZOCOR [Concomitant]
     Indication: CARDIAC DISORDER
     Dosage: 40 MG, 1X/DAY

REACTIONS (1)
  - CHEST PAIN [None]
